FAERS Safety Report 7138457-8 (Version None)
Quarter: 2010Q4

REPORT INFORMATION
  Report Type: 
  Country: None (occurrence: None)
  Receive Date: 20101206
  Receipt Date: 20101201
  Transmission Date: 20110411
  Serious: Yes (Hospitalization, Other)
  Sender: FDA-Public Use
  Company Number: PHHO2010NL17467

PATIENT
  Sex: Male
  Weight: 89 kg

DRUGS (5)
  1. BLINDED ALISKIREN ALI+TAB+CF [Suspect]
     Indication: CARDIAC FAILURE
     Dosage: NO TREATMENT
     Dates: start: 20101014, end: 20101102
  2. ENALAPRIL MALEATE [Suspect]
     Indication: CARDIAC FAILURE
     Dosage: NO TREATMENT
     Dates: start: 20101014, end: 20101102
  3. BLINDED NO TREATMENT RECEIVED NOMED [Suspect]
     Indication: CARDIAC FAILURE
     Dosage: NO TREATMENT
     Dates: start: 20101014, end: 20101102
  4. COMPARATOR ENALAPRIL [Suspect]
  5. ALISKIREN [Suspect]

REACTIONS (1)
  - IMPLANTABLE DEFIBRILLATOR INSERTION [None]
